FAERS Safety Report 12379513 (Version 3)
Quarter: 2016Q3

REPORT INFORMATION
  Report Type: Spontaneous
  Country: US (occurrence: US)
  Receive Date: 20160517
  Receipt Date: 20160901
  Transmission Date: 20161109
  Serious: No
  Sender: FDA-Public Use
  Company Number: US-RELYPSA-RLY2016000457

PATIENT
  Age: 81 Year
  Sex: Male

DRUGS (11)
  1. VELTASSA [Suspect]
     Active Substance: PATIROMER
     Indication: HYPERKALAEMIA
     Dosage: 8.4 G, QD
     Route: 048
     Dates: start: 20160406
  2. BYSTOLIC [Concomitant]
     Active Substance: NEBIVOLOL HYDROCHLORIDE
  3. MILK OF MAGNESIA [Concomitant]
     Active Substance: MAGNESIUM HYDROXIDE
  4. PRAVASTATIN SODIUM. [Concomitant]
     Active Substance: PRAVASTATIN SODIUM
  5. LAXATIVE [Concomitant]
     Active Substance: UNSPECIFIED INGREDIENT
  6. ASPIRIN 81 [Concomitant]
     Active Substance: ASPIRIN
  7. FLOMAX [Concomitant]
     Active Substance: TAMSULOSIN HYDROCHLORIDE
  8. AZILECT [Concomitant]
     Active Substance: RASAGILINE MESYLATE
  9. MIRTAZAPINE. [Concomitant]
     Active Substance: MIRTAZAPINE
  10. SODIUM BICARBONATE. [Concomitant]
     Active Substance: SODIUM BICARBONATE
  11. DIVALPROEX SODIUM. [Concomitant]
     Active Substance: DIVALPROEX SODIUM

REACTIONS (1)
  - Constipation [Unknown]

NARRATIVE: CASE EVENT DATE: 201604
